FAERS Safety Report 8721333 (Version 3)
Quarter: 2013Q4

REPORT INFORMATION
  Report Type: Spontaneous
  Country: US (occurrence: US)
  Receive Date: 20120813
  Receipt Date: 20131031
  Transmission Date: 20140711
  Serious: No
  Sender: FDA-Public Use
  Company Number: US-009507513-2012SP028683

PATIENT
  Age: 56 Year
  Sex: Female
  Weight: 56.69 kg

DRUGS (3)
  1. MIRALAX [Suspect]
     Indication: CONSTIPATION
     Dosage: 17 G, QD
     Route: 048
     Dates: start: 200911
  2. MIRALAX [Suspect]
     Indication: MENOPAUSE
  3. MIRALAX [Suspect]
     Indication: MEDICAL OBSERVATION

REACTIONS (3)
  - Dysgeusia [Recovered/Resolved]
  - Parosmia [Recovered/Resolved]
  - Incorrect drug administration duration [Unknown]
